FAERS Safety Report 5187665-4 (Version None)
Quarter: 2006Q4

REPORT INFORMATION
  Report Type: 
  Country: None (occurrence: None)
  Receive Date: 20061213
  Receipt Date: 20061130
  Transmission Date: 20070319
  Serious: Yes (Hospitalization)
  Sender: FDA-Public Use
  Company Number: PAR_1132_2006

PATIENT
  Age: 74 Year
  Sex: Female
  Weight: 63.5036 kg

DRUGS (5)
  1. MEGESTROL ACETATE [Suspect]
     Indication: PERITONEAL CARCINOMA
     Dosage: 400 MG QDAY PO
     Route: 048
     Dates: start: 20061006, end: 20061101
  2. LANOXIN [Concomitant]
  3. ZEBETA [Concomitant]
  4. ZESTRIL [Concomitant]
  5. ASPIRIN [Concomitant]

REACTIONS (2)
  - COLITIS [None]
  - CONSTIPATION [None]
